FAERS Safety Report 7787080-0 (Version None)
Quarter: 2011Q3

REPORT INFORMATION
  Report Type: 
  Country: None (occurrence: None)
  Receive Date: 20110929
  Receipt Date: 20110922
  Transmission Date: 20111222
  Serious: Yes (Hospitalization)
  Sender: FDA-Public Use
  Company Number: AU-B.I. PHARMACEUTICALS,INC./RIDGEFIELD-2011-AU-01258AU

PATIENT
  Sex: Female
  Weight: 58.6 kg

DRUGS (10)
  1. FUROSEMIDE [Concomitant]
     Dosage: 40 MG
  2. RAMIPRIL [Concomitant]
     Dosage: 2.5 MG
  3. METFORMIN HCL [Concomitant]
     Dosage: 2 G
  4. SYMBICORT [Concomitant]
     Dosage: 200/6 INHALE 1 IN THE EVENING
     Route: 055
  5. PRADAXA [Suspect]
     Dosage: 300 MG
     Dates: start: 20110626
  6. GLICLAZIDE [Concomitant]
     Dosage: 120 MG
  7. METOPROLOL TARTRATE [Concomitant]
     Dosage: 50 MG
  8. ROSUVASTATIN CALCIUM [Concomitant]
     Dosage: 10 MG
  9. DIGOXIN [Concomitant]
     Dosage: 62.5 MCG
  10. PANTOPRAZOLE SODIUM SESQUIHYDRATE [Concomitant]
     Dosage: 40 MG

REACTIONS (4)
  - HEMIPARESIS [None]
  - CEREBROVASCULAR ACCIDENT [None]
  - HEART RATE INCREASED [None]
  - LETHARGY [None]
